FAERS Safety Report 7085984-8 (Version None)
Quarter: 2010Q4

REPORT INFORMATION
  Report Type: 
  Country: None (occurrence: None)
  Receive Date: 20101105
  Receipt Date: 20101025
  Transmission Date: 20110411
  Serious: Yes (Other)
  Sender: FDA-Public Use
  Company Number: TR-ELI_LILLY_AND_COMPANY-TR201009000850

PATIENT
  Sex: Male
  Weight: 64 kg

DRUGS (1)
  1. OLANZAPINE + FLUOXETINE HCL [Suspect]
     Indication: DEPRESSION
     Dosage: UNK, UNK
     Route: 048
     Dates: start: 20100818

REACTIONS (4)
  - ASTHENIA [None]
  - FACE OEDEMA [None]
  - FACIAL PAIN [None]
  - HEADACHE [None]
